FAERS Safety Report 15603365 (Version 15)
Quarter: 2019Q3

REPORT INFORMATION
  Report Type: Report from Study
  Country: US (occurrence: US)
  Receive Date: 20181109
  Receipt Date: 20190807
  Transmission Date: 20191004
  Serious: Yes (Hospitalization, Other)
  Sender: FDA-Public Use
  Company Number: US-ACTELION-A-US2018-181220

PATIENT
  Age: 71 Year
  Sex: Female
  Weight: 106.58 kg

DRUGS (12)
  1. VELETRI [Suspect]
     Active Substance: EPOPROSTENOL
     Indication: PULMONARY ARTERIAL HYPERTENSION
     Dosage: 20.5 NG/KG, PER MIN
     Route: 042
  2. VELETRI [Suspect]
     Active Substance: EPOPROSTENOL
     Dosage: 11 NG/KG, PER MIN
     Route: 042
  3. VELETRI [Suspect]
     Active Substance: EPOPROSTENOL
     Dosage: 9 NG/KG, PER MIN
     Route: 042
  4. VELETRI [Suspect]
     Active Substance: EPOPROSTENOL
     Dosage: 21 NG/KG, PER MIN
     Route: 042
  5. VELETRI [Suspect]
     Active Substance: EPOPROSTENOL
     Dosage: 10 NG/KG, PER MIN
     Route: 042
  6. METFORMIN [Concomitant]
     Active Substance: METFORMIN HYDROCHLORIDE
  7. VELETRI [Suspect]
     Active Substance: EPOPROSTENOL
     Dosage: UNK
     Route: 042
  8. VELETRI [Suspect]
     Active Substance: EPOPROSTENOL
     Dosage: 17 NG/KG, PER MIN
     Route: 042
  9. WARFARIN [Concomitant]
     Active Substance: WARFARIN
  10. VELETRI [Suspect]
     Active Substance: EPOPROSTENOL
     Dosage: 18 NG/KG, PER MIN
     Route: 042
  11. TADALAFIL. [Suspect]
     Active Substance: TADALAFIL
     Indication: PRODUCT USED FOR UNKNOWN INDICATION
     Route: 065
  12. LETAIRIS [Concomitant]
     Active Substance: AMBRISENTAN

REACTIONS (42)
  - Fatigue [Unknown]
  - Gout [Unknown]
  - Mineral supplementation [Unknown]
  - Taste disorder [Unknown]
  - Chest pain [Unknown]
  - Palpitations [Not Recovered/Not Resolved]
  - Cardiac ablation [Unknown]
  - Decreased appetite [Not Recovered/Not Resolved]
  - Diarrhoea [Recovering/Resolving]
  - Blood iron decreased [Unknown]
  - Nausea [Unknown]
  - Erythema [Unknown]
  - Hypotension [Unknown]
  - Dyspnoea exertional [Not Recovered/Not Resolved]
  - Asthma [Unknown]
  - Oedema peripheral [Not Recovered/Not Resolved]
  - Vitamin B12 deficiency [Not Recovered/Not Resolved]
  - Weight decreased [Recovering/Resolving]
  - Pain in jaw [Unknown]
  - Muscle spasms [Unknown]
  - Cardiomegaly [Recovering/Resolving]
  - Chest discomfort [Not Recovered/Not Resolved]
  - Haemoglobin decreased [Unknown]
  - Blister [Unknown]
  - Pruritus [Unknown]
  - Catheter management [Unknown]
  - Crying [Unknown]
  - Asthenia [Unknown]
  - Complication associated with device [Unknown]
  - Eating disorder [Not Recovered/Not Resolved]
  - Blood glucose decreased [Unknown]
  - Contusion [Recovering/Resolving]
  - Condition aggravated [Not Recovered/Not Resolved]
  - Pneumothorax [Unknown]
  - Headache [Unknown]
  - Flushing [Not Recovered/Not Resolved]
  - Dermatitis contact [Unknown]
  - Sinusitis [Unknown]
  - Vertigo [Not Recovered/Not Resolved]
  - Retching [Unknown]
  - Pain in extremity [Unknown]
  - Dyspnoea [Unknown]

NARRATIVE: CASE EVENT DATE: 201811
